APPROVED DRUG PRODUCT: LEUCOVORIN CALCIUM
Active Ingredient: LEUCOVORIN CALCIUM
Strength: EQ 100MG BASE/VIAL
Dosage Form/Route: INJECTABLE;INJECTION
Application: A216590 | Product #002 | TE Code: AP
Applicant: MEITHEAL PHARMACEUTICALS INC
Approved: Jul 19, 2023 | RLD: No | RS: No | Type: RX